FAERS Safety Report 4925226-X (Version None)
Quarter: 2006Q1

REPORT INFORMATION
  Report Type: 
  Country: None (occurrence: None)
  Receive Date: 20060228
  Receipt Date: 20060124
  Transmission Date: 20060701
  Serious: Yes (Death)
  Sender: FDA-Public Use
  Company Number: JP-NOVOPROD-250350

PATIENT
  Age: 57 Year
  Sex: Male
  Weight: 60 kg

DRUGS (3)
  1. NOVOSEVEN [Suspect]
     Indication: FACTOR VIII DEFICIENCY
     Route: 042
     Dates: start: 20051201
  2. ANTIBIOTICS [Concomitant]
     Indication: INFECTION
  3. PROTHROMBINKOMPLEX-KONZENTRAT [Concomitant]
     Route: 042
     Dates: start: 20060110

REACTIONS (1)
  - CONCOMITANT DISEASE PROGRESSION [None]
